FAERS Safety Report 18596998 (Version 2)
Quarter: 2021Q2

REPORT INFORMATION
  Report Type: Spontaneous
  Country: DE (occurrence: DE)
  Receive Date: 20201209
  Receipt Date: 20210602
  Transmission Date: 20210717
  Serious: Yes (Death, Hospitalization)
  Sender: FDA-Public Use
  Company Number: DE-MYLANLABS-2020M1099927

PATIENT

DRUGS (15)
  1. PREDNISOLONE. [Suspect]
     Active Substance: PREDNISOLONE
     Indication: CENTRAL NERVOUS SYSTEM LYMPHOMA
     Dosage: 3 MG ICV, EVERY 3 WEEKS (CYCLE 4 + 6, DAY 3?5) WITH METHOTREXATE
  2. PREDNISOLONE. [Suspect]
     Active Substance: PREDNISOLONE
     Dosage: 3 MG ICV, EVERY 2 WEEKS (CYCLE 5, DAY 2?4) WITH METHOTREXATE
  3. ARA?C [Suspect]
     Active Substance: CYTARABINE
     Indication: CENTRAL NERVOUS SYSTEM LYMPHOMA
     Dosage: 10 MG, EVERY 2 WEEKS (CYCLE 5, DAY 5)
  4. SULFAMETHOXAZOLE/TRIMETHOPRIM [Concomitant]
     Active Substance: SULFAMETHOXAZOLE\TRIMETHOPRIM
     Indication: PROPHYLAXIS
     Dosage: AT EACH CYCLE
  5. G?CSF [Suspect]
     Active Substance: GRANULOCYTE COLONY-STIMULATING FACTOR NOS
     Indication: PROPHYLAXIS
     Dosage: AT EACH CYCLE
  6. ARA?C [Suspect]
     Active Substance: CYTARABINE
     Indication: CENTRAL NERVOUS SYSTEM LYMPHOMA
     Dosage: 3000 MG/M2, EVERY 3 WEEKS (CYCLE 4 + 6, DAY 1?2)
     Route: 042
  7. MERCAPTOMERIN SODIUM. [Suspect]
     Active Substance: MERCAPTOMERIN SODIUM
     Indication: DRUG TOXICITY PROPHYLAXIS
     Dosage: ADMINISTERED WITH IFOSFAMIDE AS PROTECTION
  8. IFOSFAMIDE. [Suspect]
     Active Substance: IFOSFAMIDE
     Indication: CENTRAL NERVOUS SYSTEM LYMPHOMA
     Dosage: 800 MG/M2, EVERY 2 WEEKS (CYCLE 5, DAY 2?4)
     Route: 042
  9. ACICLOVIR [Concomitant]
     Active Substance: ACYCLOVIR
     Indication: PROPHYLAXIS
     Dosage: AT EACH CYCLE
  10. METHOTREXATE. [Suspect]
     Active Substance: METHOTREXATE
     Dosage: 4000 MG/M2, EVERY 2 WEEKS (CYCLE 5, DAY 1)
     Route: 042
  11. RITUXIMAB. [Suspect]
     Active Substance: RITUXIMAB
     Indication: CENTRAL NERVOUS SYSTEM LYMPHOMA
     Dosage: 375 MG/M2 EVERY 2 WEEKS (CYCLE 1?3, DAY 0)
     Route: 042
  12. METHOTREXATE. [Suspect]
     Active Substance: METHOTREXATE
     Indication: CENTRAL NERVOUS SYSTEM LYMPHOMA
     Dosage: 2.5 MILLIGRAM, EVERY 3 WEEKS (CYCLE 4 + 6, DAY 3?5) WITH PREDNISOLONE
  13. METHOTREXATE. [Suspect]
     Active Substance: METHOTREXATE
     Indication: CENTRAL NERVOUS SYSTEM LYMPHOMA
     Dosage: 4000 MG/M2, EVERY 2 WEEKS (CYCLE 1?3, DAY 1)
     Route: 042
  14. IFOSFAMIDE. [Suspect]
     Active Substance: IFOSFAMIDE
     Dosage: 800 MILLIGRAM/SQ. METER EVERY 2 WEEKS WEEKS (CYCLE 1?3, DAY 2?4)
     Route: 042
  15. ARA?C [Suspect]
     Active Substance: CYTARABINE
     Dosage: 10 MG, EVERY 3 WEEKS (CYCLE 4 + 6, DAY 6)

REACTIONS (2)
  - Myelosuppression [Fatal]
  - Sepsis [Fatal]
